FAERS Safety Report 5841697-9 (Version None)
Quarter: 2008Q3

REPORT INFORMATION
  Report Type: 
  Country: None (occurrence: None)
  Receive Date: 20080811
  Receipt Date: 20080811
  Transmission Date: 20090109
  Serious: No
  Sender: FDA-Public Use
  Company Number: None

PATIENT
  Age: 73 Year
  Sex: Female
  Weight: 66.6788 kg

DRUGS (2)
  1. AMBIEN CR [Suspect]
     Indication: PAIN
     Dosage: ONE PILL JUST BEFORE SLEEPI PO, ONE NIGHT ONLY
     Route: 048
     Dates: start: 20080808, end: 20080809
  2. AMBIEN CR [Suspect]
     Indication: SLEEP DISORDER
     Dosage: ONE PILL JUST BEFORE SLEEPI PO, ONE NIGHT ONLY
     Route: 048
     Dates: start: 20080808, end: 20080809

REACTIONS (3)
  - BLOOD PRESSURE DECREASED [None]
  - DRUG EFFECT PROLONGED [None]
  - LETHARGY [None]
